FAERS Safety Report 5114990-5 (Version None)
Quarter: 2006Q3

REPORT INFORMATION
  Report Type: 
  Country: None (occurrence: None)
  Receive Date: 20060926
  Receipt Date: 20060918
  Transmission Date: 20061208
  Serious: Yes (Hospitalization)
  Sender: FDA-Public Use
  Company Number: AT-MERCK-0609AUT00014

PATIENT
  Age: 45 Year
  Sex: Male

DRUGS (2)
  1. CANCIDAS [Suspect]
     Indication: CANDIDIASIS
     Route: 041
     Dates: start: 20060828
  2. FLUCONAZOLE [Concomitant]
     Indication: CANDIDIASIS
     Route: 065
     Dates: end: 20060827

REACTIONS (1)
  - ASPERGILLOSIS [None]
